FAERS Safety Report 6853850-6 (Version None)
Quarter: 2010Q3

REPORT INFORMATION
  Report Type: 
  Country: None (occurrence: None)
  Receive Date: 20100717
  Receipt Date: 20071222
  Transmission Date: 20110219
  Serious: No
  Sender: FDA-Public Use
  Company Number: US-PFIZER INC-2007107074

PATIENT
  Sex: Male
  Weight: 106.6 kg

DRUGS (19)
  1. CHANTIX [Suspect]
     Indication: SMOKING CESSATION THERAPY
     Route: 048
     Dates: start: 20071212, end: 20071222
  2. ALBUTEROL [Concomitant]
     Indication: CHRONIC OBSTRUCTIVE PULMONARY DISEASE
     Route: 055
  3. ALBUTEROL [Concomitant]
     Indication: EMPHYSEMA
  4. SPIRIVA [Concomitant]
     Indication: CHRONIC OBSTRUCTIVE PULMONARY DISEASE
     Route: 055
  5. SPIRIVA [Concomitant]
     Indication: EMPHYSEMA
  6. DIAZEPAM [Concomitant]
     Route: 048
  7. LEXAPRO [Concomitant]
     Route: 048
  8. LISINOPRIL [Concomitant]
     Indication: BLOOD PRESSURE
     Route: 048
  9. PRAVACHOL [Concomitant]
     Route: 048
  10. GEMFIBROZIL [Concomitant]
     Route: 048
  11. ALLOPURINOL [Concomitant]
     Indication: GOUT
     Route: 048
  12. RANITIDINE [Concomitant]
     Route: 048
  13. METOCLOPRAMIDE [Concomitant]
     Route: 048
  14. FOLIC ACID [Concomitant]
     Route: 048
  15. FISH OIL [Concomitant]
     Route: 048
  16. VITAMINS [Concomitant]
  17. NIACIN [Concomitant]
     Route: 048
  18. ACETYLSALICYLIC ACID [Concomitant]
     Route: 048
  19. MULTI-VITAMINS [Concomitant]
     Route: 048

REACTIONS (6)
  - ABDOMINAL DISTENSION [None]
  - FLATULENCE [None]
  - INSOMNIA [None]
  - NERVOUSNESS [None]
  - RESTLESSNESS [None]
  - SLEEP DISORDER [None]
